FAERS Safety Report 18120298 (Version 1)
Quarter: 2020Q3

REPORT INFORMATION
  Report Type: Spontaneous
  Country: GB (occurrence: GB)
  Receive Date: 20200806
  Receipt Date: 20200806
  Transmission Date: 20201105
  Serious: Yes (Other)
  Sender: FDA-Public Use
  Company Number: GB-MYLANLABS-2020M1069949

PATIENT
  Age: 44 Year
  Sex: Female

DRUGS (2)
  1. PASIREOTIDE. [Suspect]
     Active Substance: PASIREOTIDE
     Indication: SOMATOSTATIN ANALOGUE THERAPY
     Route: 065
  2. EVEROLIMUS. [Suspect]
     Active Substance: EVEROLIMUS
     Indication: NEUROENDOCRINE TUMOUR
     Route: 065

REACTIONS (1)
  - Drug ineffective [Unknown]
